FAERS Safety Report 9518696 (Version 1)
Quarter: 2013Q3

REPORT INFORMATION
  Report Type: Spontaneous
  Country: US (occurrence: None)
  Receive Date: 20130910
  Receipt Date: 20130910
  Transmission Date: 20140515
  Serious: Yes (Hospitalization)
  Sender: FDA-Public Use
  Company Number: 1884253

PATIENT
  Age: 7 Day
  Sex: Male
  Weight: 4.2 kg

DRUGS (2)
  1. DOPAMINE HYDROCHLORIDE [Suspect]
     Indication: PRODUCT USED FOR UNKNOWN INDICATION
     Route: 041
  2. TPN/00897001/ [Concomitant]

REACTIONS (6)
  - Acidosis [None]
  - Coagulopathy [None]
  - Intraventricular haemorrhage [None]
  - Liver injury [None]
  - Hypertension [None]
  - Accidental overdose [None]
